FAERS Safety Report 4870834-8 (Version None)
Quarter: 2006Q1

REPORT INFORMATION
  Report Type: 
  Country: None (occurrence: None)
  Receive Date: 20060103
  Receipt Date: 20050802
  Transmission Date: 20060701
  Serious: Yes (Other)
  Sender: FDA-Public Use
  Company Number: US-MERCK-0508USA00956

PATIENT
  Age: 34 Year
  Sex: Male
  Weight: 110 kg

DRUGS (8)
  1. VIOXX [Suspect]
     Indication: BACK PAIN
     Route: 048
     Dates: end: 20040706
  2. ALTACE [Concomitant]
     Route: 048
  3. BACLOFEN [Concomitant]
     Route: 048
  4. OXYCONTIN [Concomitant]
     Route: 065
  5. DILAUDID [Concomitant]
     Route: 048
  6. NEXIUM [Concomitant]
     Route: 048
  7. EFFEXOR [Concomitant]
     Route: 048
     Dates: end: 20040624
  8. ELAVIL [Concomitant]
     Route: 065

REACTIONS (21)
  - ABDOMINAL PAIN [None]
  - ANXIETY [None]
  - BLOOD TRIGLYCERIDES INCREASED [None]
  - CHEST PAIN [None]
  - CONSTIPATION [None]
  - COUGH [None]
  - DEPRESSION [None]
  - DIARRHOEA [None]
  - DIPLOPIA [None]
  - DYSPHAGIA [None]
  - DYSPNOEA [None]
  - GASTROOESOPHAGEAL REFLUX DISEASE [None]
  - HAEMATOCHEZIA [None]
  - INTERVERTEBRAL DISC DEGENERATION [None]
  - LIVER FUNCTION TEST ABNORMAL [None]
  - OEDEMA PERIPHERAL [None]
  - OESOPHAGEAL STENOSIS [None]
  - PAIN IN EXTREMITY [None]
  - PANIC ATTACK [None]
  - PULMONARY EMBOLISM [None]
  - THROMBOSIS [None]
